FAERS Safety Report 8476062-1 (Version None)
Quarter: 2012Q2

REPORT INFORMATION
  Report Type: 
  Country: None (occurrence: None)
  Receive Date: 20120402
  Receipt Date: 20110325
  Transmission Date: 20120825
  Serious: Yes (Other)
  Sender: FDA-Public Use
  Company Number: 273525USA

PATIENT
  Sex: Female

DRUGS (4)
  1. IBANDRONATE SODIUM [Suspect]
  2. ALENDRONATE SODIUM [Suspect]
  3. ALENDRONATE SODIUM [Suspect]
  4. FOSAMAX PLUS D [Suspect]

REACTIONS (5)
  - STRESS FRACTURE [None]
  - MULTIPLE FRACTURES [None]
  - BONE DISORDER [None]
  - FEMUR FRACTURE [None]
  - LOW TURNOVER OSTEOPATHY [None]
